FAERS Safety Report 5988469-2 (Version None)
Quarter: 2008Q4

REPORT INFORMATION
  Report Type: 
  Country: None (occurrence: None)
  Receive Date: 20081210
  Receipt Date: 20081201
  Transmission Date: 20090506
  Serious: Yes (Other)
  Sender: FDA-Public Use
  Company Number: US-ABBOTT-08P-163-0490500-00

PATIENT
  Sex: Male

DRUGS (2)
  1. HUMIRA [Suspect]
     Indication: CROHN'S DISEASE
     Route: 058
     Dates: start: 20080229
  2. IMURAN [Concomitant]
     Indication: CROHN'S DISEASE
     Dosage: 2.5 TAB EVERY DAY

REACTIONS (2)
  - DRUG INEFFECTIVE [None]
  - INTESTINAL FISTULA [None]
